FAERS Safety Report 8022765 (Version 2)
Quarter: 2013Q1

REPORT INFORMATION
  Report Type: Spontaneous
  Country: US (occurrence: US)
  Receive Date: 20110706
  Receipt Date: 20130128
  Transmission Date: 20140127
  Serious: Yes (Death, Hospitalization, Other)
  Sender: FDA-Public Use
  Company Number: US-ELI_LILLY_AND_COMPANY-US201107000290

PATIENT
  Sex: Male

DRUGS (6)
  1. BYETTA [Suspect]
     Dosage: UNK
     Route: 058
     Dates: start: 20060120, end: 200608
  2. AVANDIA [Concomitant]
  3. COREG [Concomitant]
  4. GLIPIZIDE [Concomitant]
     Indication: DIABETES MELLITUS
  5. DIOVAN [Concomitant]
  6. VYTORIN [Concomitant]

REACTIONS (2)
  - Pancreatic carcinoma [Fatal]
  - Renal disorder [Unknown]
